FAERS Safety Report 14982710 (Version 1)
Quarter: 2018Q2

REPORT INFORMATION
  Report Type: Other
  Country: FR (occurrence: FR)
  Receive Date: 20180607
  Receipt Date: 20180607
  Transmission Date: 20180711
  Serious: Yes (Life-Threatening, Hospitalization)
  Sender: FDA-Public Use
  Company Number: FR-NOSTRUM LABORATORIES, INC.-2049108

PATIENT
  Age: 14 Year
  Sex: Female

DRUGS (1)
  1. PROMETHAZINE HYDROCHLORIDE AND CODEINE PHOSPHATE [Suspect]
     Active Substance: CODEINE PHOSPHATE\PROMETHAZINE HYDROCHLORIDE
     Indication: DRUG ABUSE
     Route: 048

REACTIONS (5)
  - Accidental overdose [Recovered/Resolved]
  - Aggression [Recovered/Resolved]
  - Rhabdomyolysis [Recovered/Resolved]
  - Anticholinergic syndrome [Recovered/Resolved]
  - Altered state of consciousness [Recovered/Resolved]
